FAERS Safety Report 4384418-1 (Version None)
Quarter: 2004Q2

REPORT INFORMATION
  Report Type: 
  Country: None (occurrence: None)
  Receive Date: 20040624
  Receipt Date: 20040610
  Transmission Date: 20050107
  Serious: Yes (Hospitalization)
  Sender: FDA-Public Use
  Company Number: 364444

PATIENT
  Age: 63 Year
  Sex: Male

DRUGS (4)
  1. DILATREND [Suspect]
     Dosage: 12.5MG PER DAY
     Route: 048
  2. AMARYL [Suspect]
     Dosage: 1MG PER DAY
     Route: 048
     Dates: end: 20040405
  3. LIPANTHYL [Suspect]
     Dosage: 200MG PER DAY
     Route: 048
  4. APROVEL [Concomitant]

REACTIONS (4)
  - CONFUSIONAL STATE [None]
  - DRUG INTERACTION [None]
  - HYPOGLYCAEMIA [None]
  - RENAL FAILURE [None]
